FAERS Safety Report 4956298-4 (Version None)
Quarter: 2006Q1

REPORT INFORMATION
  Report Type: 
  Country: None (occurrence: None)
  Receive Date: 20060323
  Receipt Date: 20060308
  Transmission Date: 20060701
  Serious: Yes (Hospitalization)
  Sender: FDA-Public Use
  Company Number: GXKR2006JP01434

PATIENT
  Age: 76 Year
  Sex: Male

DRUGS (1)
  1. RIMACTANE [Suspect]

REACTIONS (1)
  - BRONCHOPULMONARY ASPERGILLOSIS [None]
